FAERS Safety Report 6596589-7 (Version None)
Quarter: 2010Q1

REPORT INFORMATION
  Report Type: 
  Country: None (occurrence: None)
  Receive Date: 20100223
  Receipt Date: 20100211
  Transmission Date: 20100710
  Serious: Yes (Hospitalization)
  Sender: FDA-Public Use
  Company Number: GB-PFIZER INC-2008155675

PATIENT
  Age: 78 Year
  Sex: Male
  Weight: 89 kg

DRUGS (22)
  1. CP-751,871 [Suspect]
     Indication: PROSTATE CANCER
  2. *DOCETAXEL [Suspect]
     Indication: PROSTATE CANCER
     Dosage: 150 MG, 3 TIMES WEEKLY
     Route: 042
     Dates: start: 20080701, end: 20081202
  3. PREDNISOLONE [Suspect]
     Indication: PROSTATE CANCER
     Dosage: 5 MG, 2X/DAY
     Dates: start: 20080701, end: 20090406
  4. SIMVASTATIN [Concomitant]
     Dosage: 40 MG, 1X/DAY
  5. WARFARIN SODIUM [Concomitant]
  6. CO-TENIDONE [Concomitant]
     Dosage: 10-25 ONCE DAILY
  7. ZOPICLONE [Concomitant]
     Dosage: 7.5 MG, NOCTE
  8. LEVOTHYROXINE SODIUM [Concomitant]
     Dosage: 25 UG, 1X/DAY
  9. ALFUZOSIN [Concomitant]
     Dosage: 25 MG, 1X/DAY
  10. ACETAMINOPHEN AND CODEINE PHOSPHATE [Concomitant]
     Dosage: 8-500 MG 2 TAB 4 DAILY AS NECESSARY
  11. AMLODIPINE [Concomitant]
     Dosage: 5 MG, 1X/DAY
  12. EPROSARTAN [Concomitant]
     Dosage: 600 MG, 1X/DAY
  13. MIRTAZAPINE [Concomitant]
     Dosage: 15 MG, 1X/DAY
  14. METOCLOPRAMIDE [Concomitant]
     Dosage: UNK
  15. CALCIUM CARBONATE [Concomitant]
  16. ZOLADEX [Concomitant]
     Dosage: 10.8 MG, EVERY 3 MONTHS
     Route: 058
  17. LORAZEPAM [Concomitant]
     Dosage: 1 MG, UNK
  18. ONDANSETRON [Concomitant]
     Dosage: 8 MG, 2X/DAY
  19. LEVOMEPROMAZINE [Concomitant]
     Dosage: 6.25 MG, 1X/DAY, AS NECESSARY
  20. TOBRADEX [Concomitant]
  21. PROCYCLIDINE [Concomitant]
     Dosage: UNK
  22. APREPITANT [Concomitant]
     Dosage: 125 MG, UNK

REACTIONS (1)
  - URINARY TRACT INFECTION [None]
